FAERS Safety Report 18118135 (Version 7)
Quarter: 2021Q1

REPORT INFORMATION
  Report Type: Report from Study
  Country: CO (occurrence: CO)
  Receive Date: 20200806
  Receipt Date: 20210128
  Transmission Date: 20210419
  Serious: Yes (Hospitalization, Other)
  Sender: FDA-Public Use
  Company Number: CO-AUROBINDO-AUR-APL-2020-004450

PATIENT
  Age: 55 Year
  Sex: Female

DRUGS (6)
  1. FOLOTYN [Suspect]
     Active Substance: PRALATREXATE
     Indication: CUTANEOUS T-CELL LYMPHOMA
     Dosage: 40 MILLIGRAM, EVERY WEEK
     Route: 065
     Dates: start: 20190731, end: 20201108
  2. FOLOTYN [Suspect]
     Active Substance: PRALATREXATE
     Indication: PERIPHERAL T-CELL LYMPHOMA UNSPECIFIED
     Dosage: EVERY WEEK
     Route: 042
     Dates: start: 20191023
  3. FOLOTYN [Suspect]
     Active Substance: PRALATREXATE
     Dosage: 50 MILLIGRAM ((IN WEEK 4 OF CYCLE 2)
     Route: 042
     Dates: start: 20200905
  4. FOLOTYN [Suspect]
     Active Substance: PRALATREXATE
     Dosage: EVERY WEEK
     Route: 065
     Dates: start: 20201113
  5. VITAMIN B12 + FOLIC ACID [Concomitant]
     Active Substance: CYANOCOBALAMIN\FOLIC ACID
     Indication: PRODUCT USED FOR UNKNOWN INDICATION
     Dosage: UNK
     Route: 065
  6. FOLOTYN [Suspect]
     Active Substance: PRALATREXATE
     Dosage: (IN WEEK 6 ? CYCLE 7)
     Route: 042
     Dates: start: 20200930

REACTIONS (11)
  - Headache [Unknown]
  - Nasopharyngitis [Recovered/Resolved]
  - Pyrexia [Unknown]
  - Feeling hot [Unknown]
  - Influenza [Recovered/Resolved]
  - Pruritus [Unknown]
  - Facial paralysis [Unknown]
  - Skin depigmentation [Unknown]
  - Skin lesion [Unknown]
  - Rash [Recovered/Resolved]
  - Cough [Recovered/Resolved]

NARRATIVE: CASE EVENT DATE: 20200114
